FAERS Safety Report 7175361-3 (Version None)
Quarter: 2010Q4

REPORT INFORMATION
  Report Type: 
  Country: None (occurrence: None)
  Receive Date: 20101220
  Receipt Date: 20100310
  Transmission Date: 20110411
  Serious: No
  Sender: FDA-Public Use
  Company Number: US-AMGEN-TCS398761

PATIENT

DRUGS (2)
  1. ENBREL [Suspect]
     Indication: RHEUMATOID ARTHRITIS
     Dosage: 50 MG, QWK
     Route: 058
     Dates: start: 20060504
  2. HYDROXYCHLOROQUINE [Concomitant]
     Dosage: 200 MG, QD
     Route: 048
     Dates: start: 20090430

REACTIONS (4)
  - CONJUNCTIVITIS INFECTIVE [None]
  - EYE DISCHARGE [None]
  - NASAL CONGESTION [None]
  - RHINORRHOEA [None]
